FAERS Safety Report 7300767-9 (Version None)
Quarter: 2011Q1

REPORT INFORMATION
  Report Type: 
  Country: None (occurrence: None)
  Receive Date: 20110103
  Receipt Date: 20090928
  Transmission Date: 20110831
  Serious: Yes (Hospitalization)
  Sender: FDA-Public Use
  Company Number: US-003480

PATIENT
  Age: 59 Year
  Sex: Female
  Weight: 101 kg

DRUGS (10)
  1. ENALAPRIL MALEATE [Concomitant]
  2. PAROXETINE (PAROXETINE HYDROCHLORIDE) [Concomitant]
  3. MEDROL [Concomitant]
  4. CLONAZEPAM [Concomitant]
  5. LEVOTHYROXINE SODIUM [Concomitant]
  6. MULTIHANCE [Suspect]
     Indication: NUCLEAR MAGNETIC RESONANCE IMAGING BRAIN
     Dosage: 20ML ONCE INTRAVENOUS
     Route: 042
     Dates: start: 20090926, end: 20090926
  7. MULTIHANCE [Suspect]
     Indication: BRAIN NEOPLASM
     Dosage: 20ML ONCE INTRAVENOUS
     Route: 042
     Dates: start: 20090926, end: 20090926
  8. SIMVASTATIN [Concomitant]
  9. BENADRYL [Concomitant]
  10. BUMETANIDE [Concomitant]

REACTIONS (1)
  - HYPERSENSITIVITY [None]
